FAERS Safety Report 12782536 (Version 1)
Quarter: 2016Q3

REPORT INFORMATION
  Report Type: Report from Study
  Country: CA (occurrence: CA)
  Receive Date: 20160927
  Receipt Date: 20160927
  Transmission Date: 20161109
  Serious: Yes (Hospitalization, Other)
  Sender: FDA-Public Use
  Company Number: CA-AMGEN-CANSL2014081730

PATIENT
  Age: 88 Year
  Sex: Female

DRUGS (4)
  1. VITAMIN D                          /00107901/ [Concomitant]
     Active Substance: ERGOCALCIFEROL
     Dosage: UNK UNK, BID
  2. CALCIUM [Concomitant]
     Active Substance: CALCIUM
  3. PROLIA [Suspect]
     Active Substance: DENOSUMAB
     Indication: OSTEOPOROSIS POSTMENOPAUSAL
     Dosage: 60 MG/ML, Q6MO
     Route: 058
     Dates: start: 20140819
  4. COVERSYL [Concomitant]
     Active Substance: PERINDOPRIL

REACTIONS (11)
  - Hernia repair [Recovered/Resolved]
  - Nasopharyngitis [Recovering/Resolving]
  - Asthenia [Unknown]
  - Headache [Recovering/Resolving]
  - Uterine leiomyoma [Unknown]
  - Neck pain [Recovering/Resolving]
  - Fatigue [Unknown]
  - Ovarian cyst [Recovered/Resolved]
  - Tooth disorder [Not Recovered/Not Resolved]
  - Restlessness [Unknown]
  - Cyst [Recovered/Resolved]

NARRATIVE: CASE EVENT DATE: 2015
